FAERS Safety Report 6404686-1 (Version None)
Quarter: 2009Q4

REPORT INFORMATION
  Report Type: 
  Country: None (occurrence: None)
  Receive Date: 20091016
  Receipt Date: 20091005
  Transmission Date: 20100525
  Serious: Yes (Other)
  Sender: FDA-Public Use
  Company Number: US-ELI_LILLY_AND_COMPANY-US200907003510

PATIENT
  Sex: Female

DRUGS (1)
  1. ZYPREXA [Suspect]
     Indication: PANIC ATTACK
     Dosage: 2.5 MG, DAILY (1/D)
     Dates: start: 20050101, end: 20090710

REACTIONS (17)
  - ABORTION THREATENED [None]
  - DECREASED APPETITE [None]
  - DIZZINESS POSTURAL [None]
  - DRUG EXPOSURE DURING PREGNANCY [None]
  - DRUG WITHDRAWAL SYNDROME [None]
  - FEELING ABNORMAL [None]
  - HIGH RISK PREGNANCY [None]
  - HYPERHIDROSIS [None]
  - INSOMNIA [None]
  - MALAISE [None]
  - OFF LABEL USE [None]
  - PAIN [None]
  - PANIC ATTACK [None]
  - TREMOR [None]
  - URINARY TRACT INFECTION [None]
  - UTERINE CONTRACTIONS ABNORMAL [None]
  - VOMITING [None]
